FAERS Safety Report 17889759 (Version 1)
Quarter: 2020Q2

REPORT INFORMATION
  Report Type: Spontaneous
  Country: CA (occurrence: CA)
  Receive Date: 20200612
  Receipt Date: 20200612
  Transmission Date: 20200714
  Serious: Yes (Death)
  Sender: FDA-Public Use
  Company Number: NVSC2020CA163382

PATIENT
  Age: 41 Year
  Sex: Female
  Weight: 56 kg

DRUGS (3)
  1. MEKINIST [Suspect]
     Active Substance: TRAMETINIB DIMETHYL SULFOXIDE
     Indication: BRAF GENE MUTATION
  2. TAFINLAR [Concomitant]
     Active Substance: DABRAFENIB MESYLATE
     Indication: PRODUCT USED FOR UNKNOWN INDICATION
     Dosage: UNK
     Route: 065
  3. MEKINIST [Suspect]
     Active Substance: TRAMETINIB DIMETHYL SULFOXIDE
     Indication: COLORECTAL CANCER METASTATIC
     Dosage: 2 MG, QD
     Route: 048

REACTIONS (8)
  - Cardiogenic shock [Fatal]
  - Dyspnoea [Fatal]
  - Malaise [Fatal]
  - Fatigue [Fatal]
  - Hypothermia [Fatal]
  - Metabolic acidosis [Fatal]
  - Cough [Fatal]
  - Influenza like illness [Fatal]
